FAERS Safety Report 10434723 (Version 1)
Quarter: 2014Q3

REPORT INFORMATION
  Report Type: Spontaneous
  Country: US (occurrence: None)
  Receive Date: 20140815
  Receipt Date: 20140815
  Transmission Date: 20150326
  Serious: No
  Sender: FDA-Public Use
  Company Number: 2014TUS003099

PATIENT
  Age: 71 Year
  Sex: Male

DRUGS (3)
  1. MIRTAZAPINE. [Concomitant]
     Active Substance: MIRTAZAPINE
  2. ABILIFY [Concomitant]
     Active Substance: ARIPIPRAZOLE
  3. BRINTELLIX [Suspect]
     Active Substance: VORTIOXETINE HYDROBROMIDE
     Indication: DEPRESSION
     Route: 048
     Dates: start: 20140319, end: 20140330

REACTIONS (1)
  - Agitation [None]

NARRATIVE: CASE EVENT DATE: 20140325
